FAERS Safety Report 8559426-7 (Version None)
Quarter: 2012Q3

REPORT INFORMATION
  Report Type: 
  Country: None (occurrence: None)
  Receive Date: 20120802
  Receipt Date: 20120724
  Transmission Date: 20120928
  Serious: Yes (Other)
  Sender: FDA-Public Use
  Company Number: AU-JNJFOC-20120712706

PATIENT
  Sex: Female

DRUGS (4)
  1. CARBOPLATIN [Suspect]
     Indication: OVARIAN CANCER RECURRENT
     Dosage: IN CPLD PATIENTS ON DAY 1 AT 4 WEEK INTERVALS
     Route: 042
  2. NEUPOGEN [Concomitant]
     Indication: PROPHYLAXIS
     Dosage: ON DAY 1
     Route: 065
  3. DOXORUBICIN HCL [Suspect]
     Indication: OVARIAN CANCER RECURRENT
     Dosage: ON DAY 1
     Route: 042
  4. CARBOPLATIN [Suspect]
     Dosage: IN CP PATIENTS ON DAY 1 AT 3 WEEK INTERVALS
     Route: 042

REACTIONS (2)
  - PERIPHERAL SENSORY NEUROPATHY [None]
  - LEUKOPENIA [None]
